FAERS Safety Report 5689689-7 (Version None)
Quarter: 2008Q1

REPORT INFORMATION
  Report Type: 
  Country: None (occurrence: None)
  Receive Date: 20080328
  Receipt Date: 20080312
  Transmission Date: 20080703
  Serious: Yes (Other)
  Sender: FDA-Public Use
  Company Number: 2007US003184

PATIENT
  Age: 39 Year
  Sex: Female
  Weight: 68 kg

DRUGS (4)
  1. ADENOSCAN [Suspect]
     Indication: MULTIPLE GATED ACQUISITION SCAN
     Dosage: TOTAL DOSE, IV NOS
     Route: 042
     Dates: start: 20071213, end: 20071213
  2. LYRICA [Concomitant]
  3. ADVIL [Concomitant]
  4. ADVIL COLD + SINUS (PSEUDOEPHEDRINE HYDROCHLORIDE) [Concomitant]

REACTIONS (21)
  - CHEST PAIN [None]
  - DYSPHAGIA [None]
  - DYSPNOEA [None]
  - FACIAL PAIN [None]
  - FLUSHING [None]
  - HEART RATE IRREGULAR [None]
  - INSOMNIA [None]
  - LACRIMATION INCREASED [None]
  - MIGRAINE [None]
  - NERVOUSNESS [None]
  - NEUROPATHY PERIPHERAL [None]
  - OESOPHAGEAL SPASM [None]
  - PAIN IN JAW [None]
  - PALPITATIONS [None]
  - PANIC REACTION [None]
  - PHARYNGEAL OEDEMA [None]
  - SLEEP STUDY ABNORMAL [None]
  - TACHYCARDIA [None]
  - THROAT TIGHTNESS [None]
  - TREMOR [None]
  - VOCAL CORD DISORDER [None]
